FAERS Safety Report 9259438 (Version 2)
Quarter: 2013Q4

REPORT INFORMATION
  Report Type: Report from Study
  Country: TW (occurrence: TW)
  Receive Date: 20130428
  Receipt Date: 20131127
  Transmission Date: 20140711
  Serious: No
  Sender: FDA-Public Use
  Company Number: PHHY2013TW041203

PATIENT
  Age: 30 Year
  Sex: Male

DRUGS (24)
  1. AMN107 [Suspect]
     Dates: start: 20110713
  2. GLUCOPHAGE [Concomitant]
     Indication: TYPE 2 DIABETES MELLITUS
  3. NOVOMIX [Concomitant]
     Indication: TYPE 2 DIABETES MELLITUS
  4. DEFENSE [Concomitant]
     Indication: PROPHYLAXIS
     Dates: start: 20121113
  5. KENTAMIN [Concomitant]
     Indication: SUDDEN HEARING LOSS
     Dates: start: 20121224, end: 20121227
  6. KENTAMIN [Concomitant]
     Dates: start: 20130123, end: 20130126
  7. KENTAMIN [Concomitant]
     Dates: start: 20130130, end: 20130206
  8. RINDERON [Concomitant]
     Indication: SUDDEN HEARING LOSS
     Dates: start: 20121121, end: 20121123
  9. RINDERON [Concomitant]
     Indication: ENCEPHALITIS
     Dates: start: 20121224, end: 20121224
  10. SIBELIUM [Concomitant]
     Indication: SUDDEN HEARING LOSS
     Dates: start: 20121224, end: 20121227
  11. SIBELIUM [Concomitant]
     Dates: start: 20130224, end: 20130227
  12. WELLPIN [Concomitant]
     Indication: PROPHYLAXIS
     Dates: start: 20130123, end: 20130206
  13. PREDNISOLONE [Concomitant]
     Indication: DIZZINESS
     Dates: start: 20130123, end: 20130206
  14. DUPIN [Concomitant]
     Indication: EPILEPSY
     Dates: start: 20130201, end: 20130201
  15. FINSKA LP [Concomitant]
     Indication: RHINORRHOEA
     Dates: start: 20130201, end: 20130204
  16. MEDICON A [Concomitant]
     Indication: COUGH
     Dates: start: 20130201, end: 20130204
  17. BROWN MIXTURE                      /01682301/ [Concomitant]
     Indication: COUGH
     Dates: start: 20130224, end: 20130227
  18. XANAX [Concomitant]
     Indication: INSOMNIA
     Dates: start: 20130305
  19. VANCOMYCIN [Concomitant]
     Indication: ENCEPHALITIS
     Dates: start: 20121122, end: 20121128
  20. CEFTRIAXONE [Concomitant]
     Indication: ENCEPHALITIS
     Dates: start: 20121122, end: 20121128
  21. ZOVIRAX [Concomitant]
     Indication: ENCEPHALITIS
     Dates: start: 20121122, end: 20121128
  22. CETIN//CETIRIZINE HYDROCHLORIDE [Concomitant]
     Indication: ENCEPHALITIS
     Dates: start: 20121122, end: 20121122
  23. NIMODIPINE [Concomitant]
     Indication: ENCEPHALITIS
     Dates: start: 20121122, end: 20121226
  24. FLUNARIZINE DIHYDROCHLORIDE [Concomitant]
     Indication: ENCEPHALITIS
     Dates: start: 20121121, end: 20121205

REACTIONS (4)
  - Vomiting [Unknown]
  - Headache [Unknown]
  - Dizziness [Unknown]
  - Decreased appetite [Unknown]
